FAERS Safety Report 18579197 (Version 2)
Quarter: 2021Q1

REPORT INFORMATION
  Report Type: Spontaneous
  Country: US (occurrence: US)
  Receive Date: 20201204
  Receipt Date: 20210120
  Transmission Date: 20210419
  Serious: No
  Sender: FDA-Public Use
  Company Number: US-GLAXOSMITHKLINE-US2020AMR233670

PATIENT
  Age: 46 Year
  Sex: Female

DRUGS (1)
  1. FLUTICASONE PROPIONATE+SALMETEROL XINAFOATE [Suspect]
     Active Substance: FLUTICASONE PROPIONATE\SALMETEROL XINAFOATE
     Indication: PRODUCT USED FOR UNKNOWN INDICATION
     Dosage: UNK

REACTIONS (5)
  - Pharyngeal ulceration [Unknown]
  - Product complaint [Unknown]
  - Dry mouth [Unknown]
  - Dysphagia [Unknown]
  - Tongue ulceration [Unknown]

NARRATIVE: CASE EVENT DATE: 20201111
